FAERS Safety Report 21874209 (Version 2)
Quarter: 2025Q3

REPORT INFORMATION
  Report Type: Spontaneous
  Country: EU (occurrence: EU)
  Receive Date: 20230117
  Receipt Date: 20250829
  Transmission Date: 20251021
  Serious: Yes (Other)
  Sender: MYLAN
  Company Number: EU-ROCHE-3227552

PATIENT
  Age: 54 Year
  Sex: Male

DRUGS (84)
  1. PANTOPRAZOLE [Suspect]
     Active Substance: PANTOPRAZOLE
     Indication: Product used for unknown indication
  2. PANTOPRAZOLE [Suspect]
     Active Substance: PANTOPRAZOLE
     Route: 048
  3. PANTOPRAZOLE [Suspect]
     Active Substance: PANTOPRAZOLE
     Route: 048
  4. PANTOPRAZOLE [Suspect]
     Active Substance: PANTOPRAZOLE
  5. ALLOPURINOL [Suspect]
     Active Substance: ALLOPURINOL
     Indication: Gouty arthritis
  6. ALLOPURINOL [Suspect]
     Active Substance: ALLOPURINOL
     Route: 065
  7. ALLOPURINOL [Suspect]
     Active Substance: ALLOPURINOL
     Route: 065
  8. ALLOPURINOL [Suspect]
     Active Substance: ALLOPURINOL
  9. MAGNESIUM\PYRIDOXINE [Suspect]
     Active Substance: MAGNESIUM\PYRIDOXINE
     Indication: Mineral supplementation
  10. MAGNESIUM\PYRIDOXINE [Suspect]
     Active Substance: MAGNESIUM\PYRIDOXINE
     Route: 048
  11. MAGNESIUM\PYRIDOXINE [Suspect]
     Active Substance: MAGNESIUM\PYRIDOXINE
     Route: 048
  12. MAGNESIUM\PYRIDOXINE [Suspect]
     Active Substance: MAGNESIUM\PYRIDOXINE
  13. VALGANCICLOVIR [Suspect]
     Active Substance: VALGANCICLOVIR
     Indication: Prophylaxis
  14. VALGANCICLOVIR [Suspect]
     Active Substance: VALGANCICLOVIR
     Route: 048
  15. VALGANCICLOVIR [Suspect]
     Active Substance: VALGANCICLOVIR
     Route: 048
  16. VALGANCICLOVIR [Suspect]
     Active Substance: VALGANCICLOVIR
  17. FILGRASTIM [Suspect]
     Active Substance: FILGRASTIM
     Indication: Transitional cell carcinoma
  18. FILGRASTIM [Suspect]
     Active Substance: FILGRASTIM
     Route: 048
  19. FILGRASTIM [Suspect]
     Active Substance: FILGRASTIM
     Route: 048
  20. FILGRASTIM [Suspect]
     Active Substance: FILGRASTIM
  21. NEORAL [Suspect]
     Active Substance: CYCLOSPORINE
     Indication: Prophylaxis
  22. NEORAL [Suspect]
     Active Substance: CYCLOSPORINE
     Route: 048
  23. NEORAL [Suspect]
     Active Substance: CYCLOSPORINE
     Route: 048
  24. NEORAL [Suspect]
     Active Substance: CYCLOSPORINE
  25. MITOMYCIN [Suspect]
     Active Substance: MITOMYCIN
     Indication: Transitional cell carcinoma
     Dates: start: 202203, end: 202206
  26. MITOMYCIN [Suspect]
     Active Substance: MITOMYCIN
     Route: 043
     Dates: start: 202203, end: 202206
  27. MITOMYCIN [Suspect]
     Active Substance: MITOMYCIN
     Route: 043
     Dates: start: 202203, end: 202206
  28. MITOMYCIN [Suspect]
     Active Substance: MITOMYCIN
     Dates: start: 202203, end: 202206
  29. COMIRNATY (TOZINAMERAN) [Suspect]
     Active Substance: TOZINAMERAN
     Indication: COVID-19 immunisation
     Dates: start: 202104, end: 202104
  30. COMIRNATY (TOZINAMERAN) [Suspect]
     Active Substance: TOZINAMERAN
     Route: 030
     Dates: start: 202104, end: 202104
  31. COMIRNATY (TOZINAMERAN) [Suspect]
     Active Substance: TOZINAMERAN
     Route: 030
     Dates: start: 202104, end: 202104
  32. COMIRNATY (TOZINAMERAN) [Suspect]
     Active Substance: TOZINAMERAN
     Dates: start: 202104, end: 202104
  33. MIRCERA [Concomitant]
     Active Substance: METHOXY POLYETHYLENE GLYCOL-EPOETIN BETA
  34. MIRCERA [Concomitant]
     Active Substance: METHOXY POLYETHYLENE GLYCOL-EPOETIN BETA
     Route: 065
  35. MIRCERA [Concomitant]
     Active Substance: METHOXY POLYETHYLENE GLYCOL-EPOETIN BETA
     Route: 065
  36. MIRCERA [Concomitant]
     Active Substance: METHOXY POLYETHYLENE GLYCOL-EPOETIN BETA
  37. EVUSHELD [Concomitant]
     Active Substance: CILGAVIMAB\TIXAGEVIMAB
     Dates: start: 20220530, end: 20220530
  38. EVUSHELD [Concomitant]
     Active Substance: CILGAVIMAB\TIXAGEVIMAB
     Route: 065
     Dates: start: 20220530, end: 20220530
  39. EVUSHELD [Concomitant]
     Active Substance: CILGAVIMAB\TIXAGEVIMAB
     Route: 065
     Dates: start: 20220530, end: 20220530
  40. EVUSHELD [Concomitant]
     Active Substance: CILGAVIMAB\TIXAGEVIMAB
     Dates: start: 20220530, end: 20220530
  41. HIZENTRA [Concomitant]
     Active Substance: HUMAN IMMUNOGLOBULIN G
  42. HIZENTRA [Concomitant]
     Active Substance: HUMAN IMMUNOGLOBULIN G
     Route: 065
  43. HIZENTRA [Concomitant]
     Active Substance: HUMAN IMMUNOGLOBULIN G
     Route: 065
  44. HIZENTRA [Concomitant]
     Active Substance: HUMAN IMMUNOGLOBULIN G
  45. MIANSERIN [Concomitant]
     Active Substance: MIANSERIN
  46. MIANSERIN [Concomitant]
     Active Substance: MIANSERIN
     Route: 065
  47. MIANSERIN [Concomitant]
     Active Substance: MIANSERIN
     Route: 065
  48. MIANSERIN [Concomitant]
     Active Substance: MIANSERIN
  49. IRBESARTAN [Concomitant]
     Active Substance: IRBESARTAN
  50. IRBESARTAN [Concomitant]
     Active Substance: IRBESARTAN
     Route: 065
  51. IRBESARTAN [Concomitant]
     Active Substance: IRBESARTAN
     Route: 065
  52. IRBESARTAN [Concomitant]
     Active Substance: IRBESARTAN
  53. INNOHEP [Concomitant]
     Active Substance: TINZAPARIN SODIUM
  54. INNOHEP [Concomitant]
     Active Substance: TINZAPARIN SODIUM
     Route: 065
  55. INNOHEP [Concomitant]
     Active Substance: TINZAPARIN SODIUM
     Route: 065
  56. INNOHEP [Concomitant]
     Active Substance: TINZAPARIN SODIUM
  57. LOPERAMIDE [Concomitant]
     Active Substance: LOPERAMIDE
  58. LOPERAMIDE [Concomitant]
     Active Substance: LOPERAMIDE
     Route: 065
  59. LOPERAMIDE [Concomitant]
     Active Substance: LOPERAMIDE
     Route: 065
  60. LOPERAMIDE [Concomitant]
     Active Substance: LOPERAMIDE
  61. THIAMINE HYDROCHLORIDE [Concomitant]
     Active Substance: THIAMINE HYDROCHLORIDE
  62. THIAMINE HYDROCHLORIDE [Concomitant]
     Active Substance: THIAMINE HYDROCHLORIDE
     Route: 065
  63. THIAMINE HYDROCHLORIDE [Concomitant]
     Active Substance: THIAMINE HYDROCHLORIDE
     Route: 065
  64. THIAMINE HYDROCHLORIDE [Concomitant]
     Active Substance: THIAMINE HYDROCHLORIDE
  65. CERTICAN [Concomitant]
     Active Substance: EVEROLIMUS
  66. CERTICAN [Concomitant]
     Active Substance: EVEROLIMUS
     Route: 065
  67. CERTICAN [Concomitant]
     Active Substance: EVEROLIMUS
     Route: 065
  68. CERTICAN [Concomitant]
     Active Substance: EVEROLIMUS
  69. CALCIUM CARBONATE [Concomitant]
     Active Substance: CALCIUM CARBONATE
  70. CALCIUM CARBONATE [Concomitant]
     Active Substance: CALCIUM CARBONATE
     Route: 065
  71. CALCIUM CARBONATE [Concomitant]
     Active Substance: CALCIUM CARBONATE
     Route: 065
  72. CALCIUM CARBONATE [Concomitant]
     Active Substance: CALCIUM CARBONATE
  73. ATOVAQUONE [Concomitant]
     Active Substance: ATOVAQUONE
  74. ATOVAQUONE [Concomitant]
     Active Substance: ATOVAQUONE
     Route: 065
  75. ATOVAQUONE [Concomitant]
     Active Substance: ATOVAQUONE
     Route: 065
  76. ATOVAQUONE [Concomitant]
     Active Substance: ATOVAQUONE
  77. PREDNISONE [Concomitant]
     Active Substance: PREDNISONE
  78. PREDNISONE [Concomitant]
     Active Substance: PREDNISONE
     Route: 065
  79. PREDNISONE [Concomitant]
     Active Substance: PREDNISONE
     Route: 065
  80. PREDNISONE [Concomitant]
     Active Substance: PREDNISONE
  81. INFLUENZA VIRUS VACCINE [Concomitant]
     Active Substance: INFLUENZA VIRUS VACCINE
  82. INFLUENZA VIRUS VACCINE [Concomitant]
     Active Substance: INFLUENZA VIRUS VACCINE
     Route: 065
  83. INFLUENZA VIRUS VACCINE [Concomitant]
     Active Substance: INFLUENZA VIRUS VACCINE
     Route: 065
  84. INFLUENZA VIRUS VACCINE [Concomitant]
     Active Substance: INFLUENZA VIRUS VACCINE

REACTIONS (1)
  - Neuropathy peripheral [Recovering/Resolving]

NARRATIVE: CASE EVENT DATE: 20220401
